FAERS Safety Report 12814458 (Version 3)
Quarter: 2016Q4

REPORT INFORMATION
  Report Type: Spontaneous
  Country: US (occurrence: US)
  Receive Date: 20161005
  Receipt Date: 20161214
  Transmission Date: 20170207
  Serious: Yes (Other)
  Sender: FDA-Public Use
  Company Number: US-UNITED THERAPEUTICS-UNT-2016-011268

PATIENT
  Age: 73 Year
  Sex: Female
  Weight: 38.95 kg

DRUGS (8)
  1. TYVASO [Suspect]
     Active Substance: TREPROSTINIL
     Indication: PULMONARY HYPERTENSION
     Dosage: 18-54 ?G, QID
     Dates: start: 20151029
  2. OXYGEN. [Concomitant]
     Active Substance: OXYGEN
     Indication: PRODUCT USED FOR UNKNOWN INDICATION
  3. TYVASO [Suspect]
     Active Substance: TREPROSTINIL
     Dosage: UNK
  4. LETAIRIS [Suspect]
     Active Substance: AMBRISENTAN
     Indication: PRODUCT USED FOR UNKNOWN INDICATION
     Dosage: 5 MG, QD
     Route: 065
     Dates: start: 20151028, end: 201609
  5. TYVASO [Suspect]
     Active Substance: TREPROSTINIL
     Dosage: 18-72 ?G, QID
  6. TYVASO [Suspect]
     Active Substance: TREPROSTINIL
     Dosage: UNK
  7. DILTIAZEM. [Concomitant]
     Active Substance: DILTIAZEM
     Indication: PRODUCT USED FOR UNKNOWN INDICATION
  8. TYVASO [Suspect]
     Active Substance: TREPROSTINIL
     Dosage: UNK

REACTIONS (12)
  - Abdominal discomfort [Unknown]
  - Pleural effusion [Unknown]
  - Eye disorder [Unknown]
  - Respiratory tract congestion [Unknown]
  - Pulmonary oedema [Unknown]
  - Sneezing [Unknown]
  - Oxygen consumption increased [Unknown]
  - Diarrhoea [Unknown]
  - Product use issue [Unknown]
  - Rhinorrhoea [Unknown]
  - Dyspnoea [Unknown]
  - Fluid retention [Unknown]

NARRATIVE: CASE EVENT DATE: 201607
